FAERS Safety Report 4275071-6 (Version None)
Quarter: 2004Q1

REPORT INFORMATION
  Report Type: 
  Country: None (occurrence: None)
  Receive Date: 20040116
  Receipt Date: 20040109
  Transmission Date: 20041129
  Serious: Yes (Hospitalization)
  Sender: FDA-Public Use
  Company Number: 200410007BFR

PATIENT
  Age: 31 Year
  Sex: Male
  Weight: 60 kg

DRUGS (6)
  1. ASPIRIN [Suspect]
     Dosage: ORAL
     Route: 048
  2. DI ANTALVIC [Suspect]
     Dosage: ORAL
     Route: 048
  3. ANDROCUR (CYPROTERONE ACETATE) [Suspect]
     Indication: TRANS-SEXUALISM
     Dosage: 50 MG, TOTAL DAILY, ORAL
     Route: 048
     Dates: end: 20030430
  4. ACETAMINOPHEN [Suspect]
  5. OMEPRAZOLE [Suspect]
     Dosage: 20 MG, TOTAL DAILY, ORAL
     Route: 048
     Dates: start: 20030115, end: 20030531
  6. ETHANOL [Concomitant]

REACTIONS (1)
  - HEPATITIS ACUTE [None]
